FAERS Safety Report 9961951 (Version 1)
Quarter: 2014Q1

REPORT INFORMATION
  Report Type: Report from Study
  Country: US (occurrence: US)
  Receive Date: 20140305
  Receipt Date: 20140305
  Transmission Date: 20141002
  Serious: No
  Sender: FDA-Public Use
  Company Number: US-ABBVIE-13P-163-1114513-00

PATIENT
  Age: 21 Year
  Sex: Female
  Weight: 70.37 kg

DRUGS (2)
  1. HUMIRA [Suspect]
     Indication: CROHN^S DISEASE
     Dates: start: 201206, end: 201208
  2. HUMIRA [Suspect]
     Dates: start: 201211

REACTIONS (2)
  - Incorrect dose administered [Not Recovered/Not Resolved]
  - Diarrhoea [Recovered/Resolved]
